FAERS Safety Report 8792349 (Version 1)
Quarter: 2012Q4

REPORT INFORMATION
  Report Type: 
  Country: US (occurrence: US)
  Receive Date: 20120918
  Receipt Date: 20120918
  Transmission Date: 20130627
  Serious: Yes (Hospitalization, Other)
  Sender: FDA-Public Use
  Company Number: US-PFIZER INC-2011076056

PATIENT
  Age: 62 Year
  Sex: Female

DRUGS (69)
  1. ATENOLOL [Suspect]
     Dosage: UNK
     Route: 065
  2. NEXIUM [Suspect]
     Dosage: 40 mg, 2x/day
     Route: 048
  3. PRILOSEC [Suspect]
     Dosage: UNK
     Route: 048
  4. CRESTOR [Suspect]
     Dosage: 10 mg, daily
     Route: 048
  5. ANBESOL [Concomitant]
     Dosage: UNK
     Route: 065
  6. ALCOHOL [Concomitant]
     Dosage: UNK
     Route: 065
  7. AMOXICILLIN [Concomitant]
     Dosage: UNK
     Route: 065
  8. ETHANOL [Concomitant]
     Dosage: UNK
     Route: 065
  9. ASCRIPTIN [Concomitant]
     Dosage: UNK
     Route: 065
  10. AUGMENTIN [Concomitant]
  11. AXID [Concomitant]
     Dosage: UNK
     Route: 065
  12. BETADINE [Concomitant]
     Dosage: UNK
     Route: 065
  13. CODEINE [Concomitant]
     Dosage: UNK
     Route: 065
  14. COMPAZINE [Concomitant]
     Dosage: UNK
     Route: 065
  15. COZAAR [Concomitant]
     Dosage: UNK
     Route: 065
  16. DARVON [Concomitant]
     Dosage: UNK
     Route: 065
  17. DARVOCET-N [Concomitant]
     Dosage: UNK
     Route: 065
  18. DAYPRO [Concomitant]
     Dosage: UNK
     Route: 065
  19. DEMEROL [Concomitant]
  20. DIOVANE [Concomitant]
  21. DOLOBID [Concomitant]
     Dosage: UNK
     Route: 065
  22. ERYTHROMYCIN [Concomitant]
     Dosage: UNK
     Route: 065
  23. PIROXICAM [Concomitant]
     Dosage: UNK
     Route: 065
  24. HYDROCHLOROTHIAZIDE [Concomitant]
     Dosage: UNK
     Route: 065
  25. IBUPROFEN [Concomitant]
     Dosage: UNK
     Route: 065
  26. LODINE [Concomitant]
     Dosage: UNK
     Route: 065
  27. LEVAQUIN [Concomitant]
     Dosage: UNK
     Route: 065
  28. MOTRIN [Concomitant]
  29. PENICILLIN NOS [Concomitant]
     Dosage: UNK
     Route: 065
  30. PEPCID [Concomitant]
     Dosage: UNK
     Route: 065
  31. PERCOCET [Concomitant]
  32. PERCODAN [Concomitant]
     Dosage: UNK
     Route: 065
  33. CISAPRIDE [Concomitant]
     Dosage: UNK
     Route: 065
  34. PREVACID [Concomitant]
     Dosage: UNK
     Route: 065
  35. PROVERA [Concomitant]
     Dosage: UNK
     Route: 065
  36. TAGAMET [Concomitant]
     Dosage: UNK
     Route: 065
  37. TALWIN [Concomitant]
     Dosage: UNK
     Route: 065
  38. TORADOL [Concomitant]
  39. ULTRAM [Concomitant]
     Dosage: UNK
     Route: 065
  40. VASOTEC [Concomitant]
     Dosage: UNK
     Route: 065
  41. ALAVERT [Concomitant]
     Dosage: 10 mg, daily
     Route: 065
  42. ACIDOPHILUS [Concomitant]
     Dosage: 10 mg, 3x/day
     Route: 065
  43. ADVAIR DISKUS [Concomitant]
     Dosage: 100/50 two per day
     Route: 055
  44. ADVAIR DISKUS [Concomitant]
     Dosage: 1 DF, 2x/day
     Route: 055
  45. ADVAIR DISKUS [Concomitant]
     Dosage: 100-50 DISKUS, INHALE ONE TIME BY MOUTH TWICE A DAY
     Route: 055
  46. ALBUTEROL [Concomitant]
     Dosage: 0.083% 2.5 mg, always one per day
     Route: 065
  47. BENADRYL [Concomitant]
     Dosage: 25 mg HS
     Route: 065
  48. CEREBREX [Concomitant]
     Dosage: 200 mg, 2x/day
  49. FLEXERIL [Concomitant]
     Dosage: Q/2 tablet Q four hours not exceed to three tablets per day
     Route: 065
  50. LECITHIN [Concomitant]
     Dosage: 520 mg, 3x/day
     Route: 065
  51. LEVSIN [Concomitant]
     Dosage: 25 mg, 4x/day
     Route: 065
  52. BENTYL [Concomitant]
     Dosage: 10 mg, 3x/day
     Route: 065
     Dates: start: 199508
  53. LIDOCAINE HYDROCHLORIDE [Concomitant]
     Dosage: 5 %, 2x/day
     Route: 065
  54. PATANOL [Concomitant]
     Dosage: 90 ug, as needed
     Route: 065
  55. PROVENTIL TABLET [Concomitant]
     Dosage: 90 MICROGRAM INHALER INHALE 2 PUFFS BY MOUTH EVERY 4 HOURS AS NEEDED
  56. TYLENOL [Concomitant]
     Indication: ARTHRITIS
     Dosage: 650 mg, as needed
     Route: 065
  57. VITAMIN B6 [Concomitant]
     Dosage: 50 mg, 3x/day
     Route: 065
  58. VITAMIN B12 [Concomitant]
     Dosage: 500 mg, 3x/day
     Route: 065
  59. VITAMIN C [Concomitant]
     Dosage: 500 mg, SID
     Route: 065
  60. VITAMIN D [Concomitant]
     Dosage: 4000 IU, daily
     Route: 065
  61. ZIAC [Concomitant]
     Dosage: 10 mg, daily
     Route: 065
  62. ZIAC [Concomitant]
     Dosage: 10-6.25 mg, one tablet once daily
     Route: 048
  63. ZIAC [Concomitant]
     Dosage: 2.5-6.25 mg, one tablet once daily
     Route: 048
  64. AZITHROMYCIN [Concomitant]
     Dosage: UNK
     Route: 065
  65. CHLORHEXIDINE [Concomitant]
     Dosage: 0.12% rinse with 15 mgl twice a day
     Route: 065
  66. CO-Q-10 [Concomitant]
     Dosage: UNK
     Route: 065
  67. ACYCLOVIR [Concomitant]
     Dosage: UNK
     Route: 048
  68. CHLORDIAZEPOXIDE W/CLIDINIUM BROMIDE [Concomitant]
     Dosage: 1 DF, 4x/day
     Route: 048
  69. LEVSIN/SL [Concomitant]
     Indication: PAIN
     Dosage: 0.125 mg, every 4 hrs
     Route: 048

REACTIONS (14)
  - Osteonecrosis of jaw [Unknown]
  - Intestinal obstruction [Unknown]
  - Drug effect decreased [Unknown]
  - Gastrooesophageal reflux disease [Unknown]
  - Muscle spasms [Unknown]
  - Headache [Unknown]
  - Nausea [Unknown]
  - Joint injury [Unknown]
  - Headache [Unknown]
  - Drug dose omission [Unknown]
  - Drug effect decreased [Unknown]
  - Pain [Unknown]
  - Arthritis [Unknown]
  - Malaise [Unknown]
